FAERS Safety Report 20222323 (Version 2)
Quarter: 2022Q1

REPORT INFORMATION
  Report Type: Spontaneous
  Country: US (occurrence: US)
  Receive Date: 20211223
  Receipt Date: 20220130
  Transmission Date: 20220423
  Serious: Yes (Other)
  Sender: FDA-Public Use
  Company Number: US-Blueprint Medicines Corporation-SP-US-2021-002594

PATIENT
  Age: 74 Year
  Sex: Male

DRUGS (2)
  1. AYVAKIT [Suspect]
     Active Substance: AVAPRITINIB
     Indication: Gastrointestinal stromal tumour
     Route: 048
     Dates: start: 20210925, end: 20211108
  2. AYVAKIT [Suspect]
     Active Substance: AVAPRITINIB
     Route: 048
     Dates: start: 202112

REACTIONS (11)
  - Fall [Unknown]
  - Feeling abnormal [Unknown]
  - Diarrhoea [Recovering/Resolving]
  - Joint swelling [Unknown]
  - Rash [Recovering/Resolving]
  - Dizziness [Unknown]
  - Contusion [Unknown]
  - Skin abrasion [Unknown]
  - Arthralgia [Unknown]
  - Myalgia [Unknown]
  - Arthropathy [Unknown]
